FAERS Safety Report 5656586-2 (Version None)
Quarter: 2008Q1

REPORT INFORMATION
  Report Type: 
  Country: None (occurrence: None)
  Receive Date: 20080219
  Receipt Date: 20071220
  Transmission Date: 20080703
  Serious: No
  Sender: FDA-Public Use
  Company Number: WAES 0712USA08394

PATIENT
  Age: 80 Year
  Sex: Male

DRUGS (9)
  1. JANUVIA [Suspect]
     Indication: DIABETES MELLITUS
     Dosage: 100 MG/DAILY/PO
     Route: 048
     Dates: start: 20071215
  2. FLOMAX (MORNIFLUMATE) [Concomitant]
  3. PLAVIX [Concomitant]
  4. PROSCAR [Concomitant]
  5. ASPIRIN [Concomitant]
  6. CARVEDILOL [Concomitant]
  7. CRANBERRY [Concomitant]
  8. ISOSORBIDE DINITRATE [Concomitant]
  9. UBIDECARENONE [Concomitant]

REACTIONS (1)
  - DRUG INEFFECTIVE [None]
